FAERS Safety Report 9915988 (Version 1)
Quarter: 2014Q1

REPORT INFORMATION
  Report Type: Spontaneous
  Country: TR (occurrence: None)
  Receive Date: 20140219
  Receipt Date: 20140219
  Transmission Date: 20141002
  Serious: Yes (Other)
  Sender: FDA-Public Use
  Company Number: KAD201402-000207

PATIENT
  Age: 48 Year
  Sex: Female

DRUGS (3)
  1. RIBAVIRIN (RIBAVIRIN) [Suspect]
     Indication: HEPATITIS C
     Dosage: 48 WEEKS
  2. PEGYLATED INTERFERON ALFA-2A (PEGYLATED INTERFERON ALFA-2A) [Suspect]
     Indication: HEPATITIS C
  3. TENOFOVIR (TENOFOVIR) UNKNOWN [Concomitant]

REACTIONS (5)
  - Lymph node tuberculosis [None]
  - Cough [None]
  - Chest pain [None]
  - Dysphagia [None]
  - Hepatitis [None]
